FAERS Safety Report 5947045-8 (Version None)
Quarter: 2008Q4

REPORT INFORMATION
  Report Type: 
  Country: None (occurrence: None)
  Receive Date: 20081110
  Receipt Date: 20081106
  Transmission Date: 20090506
  Serious: Yes (Hospitalization, Other)
  Sender: FDA-Public Use
  Company Number: CA-BRISTOL-MYERS SQUIBB COMPANY-14075303

PATIENT
  Age: 27 Year
  Sex: Female

DRUGS (10)
  1. ABATACEPT [Suspect]
     Indication: SYSTEMIC LUPUS ERYTHEMATOSUS
     Route: 042
     Dates: start: 20060110
  2. PREDNISONE TAB [Concomitant]
     Route: 048
     Dates: start: 20071104
  3. CHLOROQUINE [Concomitant]
     Route: 048
     Dates: start: 20071205
  4. LEVOTHYROXINE SODIUM [Concomitant]
     Route: 048
     Dates: start: 20010601
  5. AZATHIOPRINE [Concomitant]
     Route: 048
     Dates: start: 20010601
  6. CALCIUM [Concomitant]
     Route: 048
     Dates: start: 20050519
  7. VITAMIN D [Concomitant]
     Route: 048
     Dates: start: 20020201
  8. ASPIRIN [Concomitant]
     Route: 048
     Dates: start: 20030101
  9. TOPAMAX [Concomitant]
     Indication: EPILEPSY
     Route: 048
     Dates: start: 20070710
  10. QUINACRINE [Concomitant]
     Route: 048
     Dates: start: 20040219

REACTIONS (1)
  - SALMONELLOSIS [None]
